FAERS Safety Report 7652760-4 (Version None)
Quarter: 2011Q3

REPORT INFORMATION
  Report Type: 
  Country: None (occurrence: None)
  Receive Date: 20110803
  Receipt Date: 20110720
  Transmission Date: 20111222
  Serious: Yes (Other)
  Sender: FDA-Public Use
  Company Number: TR-RANBAXY-2011RR-46499

PATIENT
  Age: 48 Year
  Sex: Male

DRUGS (12)
  1. TETRACYCLINE [Suspect]
     Indication: PRODUCT USED FOR UNKNOWN INDICATION
     Route: 065
  2. CARBAMAZEPINE [Suspect]
     Indication: PRODUCT USED FOR UNKNOWN INDICATION
     Route: 065
  3. OMNIPAQUE 140 [Suspect]
     Indication: SKIN TEST
     Route: 065
  4. HYDROXYZINE HCL [Suspect]
     Indication: PRODUCT USED FOR UNKNOWN INDICATION
     Route: 065
  5. OMNIPAQUE 140 [Suspect]
     Indication: SKIN TEST POSITIVE
  6. PSEUDOEPHEDRINE HCL [Suspect]
     Indication: PRODUCT USED FOR UNKNOWN INDICATION
     Route: 065
  7. ALFASID [Suspect]
     Indication: SKIN TEST
     Route: 065
  8. ALFASID [Suspect]
     Indication: SKIN TEST POSITIVE
  9. AMOXICILLIN [Suspect]
     Indication: PRODUCT USED FOR UNKNOWN INDICATION
     Route: 065
  10. ERYTHROMYCIN [Suspect]
     Indication: PRODUCT USED FOR UNKNOWN INDICATION
     Route: 065
  11. CETIRIZINE HCL [Suspect]
     Indication: PRODUCT USED FOR UNKNOWN INDICATION
     Route: 048
  12. LANSOPRAZOLE [Suspect]
     Indication: PRODUCT USED FOR UNKNOWN INDICATION
     Route: 065

REACTIONS (1)
  - DRUG HYPERSENSITIVITY [None]
